FAERS Safety Report 8699023 (Version 2)
Quarter: 2013Q4

REPORT INFORMATION
  Report Type: Spontaneous
  Country: US (occurrence: US)
  Receive Date: 20120802
  Receipt Date: 20131101
  Transmission Date: 20140711
  Serious: No
  Sender: FDA-Public Use
  Company Number: US-009507513-1207USA008278

PATIENT
  Age: 68 Year
  Sex: Female

DRUGS (3)
  1. JANUMET [Suspect]
     Indication: TYPE 2 DIABETES MELLITUS
     Dosage: UNK
     Route: 048
     Dates: start: 20120628
  2. LIPITOR [Concomitant]
  3. TRAMADOL HYDROCHLORIDE [Concomitant]

REACTIONS (1)
  - Constipation [Not Recovered/Not Resolved]
